FAERS Safety Report 21458907 (Version 1)
Quarter: 2022Q4

REPORT INFORMATION
  Report Type: Spontaneous
  Country: US (occurrence: None)
  Receive Date: 20221013
  Receipt Date: 20221013
  Transmission Date: 20230113
  Serious: Yes (Hospitalization, Disabling)
  Sender: FDA-Public Use
  Company Number: None

PATIENT
  Age: 26 Year
  Sex: Female
  Weight: 54 kg

DRUGS (3)
  1. XANAX [Suspect]
     Active Substance: ALPRAZOLAM
  2. Remeron(mirtazapine) [Concomitant]
  3. HYDROXYZINE [Concomitant]
     Active Substance: HYDROXYZINE HYDROCHLORIDE

REACTIONS (17)
  - Drug dependence [None]
  - Rebound effect [None]
  - Panic attack [None]
  - Drug withdrawal syndrome [None]
  - Loss of personal independence in daily activities [None]
  - Feeling abnormal [None]
  - Altered visual depth perception [None]
  - Major depression [None]
  - Intrusive thoughts [None]
  - Cognitive disorder [None]
  - Myalgia [None]
  - Neck pain [None]
  - Arthralgia [None]
  - Tension headache [None]
  - Hangover [None]
  - Neuropathy peripheral [None]
  - Vibratory sense increased [None]

NARRATIVE: CASE EVENT DATE: 20220708
